FAERS Safety Report 14579673 (Version 3)
Quarter: 2018Q1

REPORT INFORMATION
  Report Type: Report from Study
  Country: GB (occurrence: GB)
  Receive Date: 20180227
  Receipt Date: 20180228
  Transmission Date: 20180509
  Serious: Yes (Death)
  Sender: FDA-Public Use
  Company Number: GB-TEVA-2018-GB-861887

PATIENT
  Age: 86 Year
  Sex: Female

DRUGS (3)
  1. WARFARIN [Suspect]
     Active Substance: WARFARIN
     Indication: ANTICOAGULANT THERAPY
     Route: 065
  2. ALLOPURINOL. [Interacting]
     Active Substance: ALLOPURINOL
     Route: 065
  3. COLCHICINE. [Interacting]
     Active Substance: COLCHICINE
     Route: 065

REACTIONS (2)
  - Cerebral haemorrhage [Fatal]
  - Drug interaction [Fatal]
